FAERS Safety Report 14172180 (Version 2)
Quarter: 2017Q4

REPORT INFORMATION
  Report Type: Report from Study
  Country: US (occurrence: US)
  Receive Date: 20171109
  Receipt Date: 20171204
  Transmission Date: 20180321
  Serious: No
  Sender: FDA-Public Use
  Company Number: US-AMGEN-USASL2017167795

PATIENT
  Age: 53 Year
  Sex: Female

DRUGS (2)
  1. ENBREL [Suspect]
     Active Substance: ETANERCEPT
     Indication: RHEUMATOID ARTHRITIS
     Dosage: 50 MG, QWK
     Route: 065
  2. ALENDRONAT [Suspect]
     Active Substance: ALENDRONATE SODIUM
     Indication: BONE DENSITY DECREASED
     Dosage: UNK
     Route: 065
     Dates: start: 2017

REACTIONS (5)
  - Headache [Unknown]
  - Endodontic procedure [Unknown]
  - Pain in jaw [Unknown]
  - Sinus congestion [Unknown]
  - Bone density decreased [Unknown]

NARRATIVE: CASE EVENT DATE: 2017
